FAERS Safety Report 14372203 (Version 1)
Quarter: 2018Q1

REPORT INFORMATION
  Report Type: Spontaneous
  Country: BR (occurrence: BR)
  Receive Date: 20180110
  Receipt Date: 20180110
  Transmission Date: 20180509
  Serious: Yes (Other)
  Sender: FDA-Public Use
  Company Number: BR-ABBVIE-18P-020-2217861-00

PATIENT
  Age: 80 Year
  Sex: Male
  Weight: 70 kg

DRUGS (6)
  1. DEPAKOTE ER [Suspect]
     Active Substance: DIVALPROEX SODIUM
     Indication: MEMORY IMPAIRMENT
     Dosage: DAILY DOSE: 1 TABLET; AT NIGHT
     Route: 048
     Dates: start: 2016
  2. AVODART [Concomitant]
     Active Substance: DUTASTERIDE
     Indication: PROSTATIC DISORDER
     Route: 048
  3. ROSUVASTATIN CALCIUM. [Concomitant]
     Active Substance: ROSUVASTATIN CALCIUM
     Indication: BLOOD CHOLESTEROL INCREASED
     Dosage: DAILY DOSE: 1 TABLET, AT NIGHT
     Route: 048
  4. DIAMICRON [Concomitant]
     Active Substance: GLICLAZIDE
     Indication: DIABETES MELLITUS
     Route: 048
  5. ORGANONEURO CEREBRAL [Concomitant]
     Indication: CEREBRAL DISORDER
     Dosage: DAILY DOSE: 3 TABLET; (1 TABLET IN THE MORNING/AT THE AFTERNOON/AT NIGHT)
     Route: 048
  6. MILGAMMA [Concomitant]
     Active Substance: VITAMIN B
     Indication: MYOSITIS
     Route: 048

REACTIONS (5)
  - Prostate cancer [Not Recovered/Not Resolved]
  - Product use in unapproved indication [Unknown]
  - Off label use [Unknown]
  - Dysuria [Not Recovered/Not Resolved]
  - Weight decreased [Unknown]

NARRATIVE: CASE EVENT DATE: 201707
